FAERS Safety Report 8170446-7 (Version None)
Quarter: 2012Q1

REPORT INFORMATION
  Report Type: 
  Country: None (occurrence: None)
  Receive Date: 20120228
  Receipt Date: 20120221
  Transmission Date: 20120608
  Serious: Yes (Other)
  Sender: FDA-Public Use
  Company Number: NL-BAYER-2012-009022

PATIENT
  Age: 57 Year
  Sex: Female

DRUGS (8)
  1. BETASERON [Suspect]
     Indication: SECONDARY PROGRESSIVE MULTIPLE SCLEROSIS
     Dosage: UNK
     Dates: start: 20111028, end: 20120101
  2. CITALOPRAM HYDROBROMIDE [Concomitant]
     Dosage: 20 MG, BID
     Dates: start: 20101101, end: 20120202
  3. PRAVASTATIN [Concomitant]
     Dosage: 20 MG, QD
     Dates: start: 20000101
  4. PANTOPRAZOLE [Concomitant]
     Dosage: 20 MG, QD
     Dates: start: 19990101
  5. BETASERON [Suspect]
     Dosage: .5 ML, UNK
     Dates: start: 20120202, end: 20120213
  6. ALENDRONIC ACID [Concomitant]
     Dosage: 70 MG, OW
     Dates: start: 20100101
  7. CALCIUM CARBONATE [Concomitant]
     Dosage: 500 MG, QD
     Route: 048
     Dates: start: 20100101
  8. NAPROXEN [Concomitant]
     Dosage: 250 MG, BID
     Dates: start: 19990101

REACTIONS (2)
  - BLISTER [None]
  - SKIN ULCER HAEMORRHAGE [None]
